FAERS Safety Report 24111075 (Version 1)
Quarter: 2024Q3

REPORT INFORMATION
  Report Type: Spontaneous
  Country: US (occurrence: US)
  Receive Date: 20240718
  Receipt Date: 20240718
  Transmission Date: 20241017
  Serious: Yes (Other)
  Sender: MYLAN
  Company Number: US-MYLANLABS-2024M1066172

PATIENT
  Age: 70 Year
  Sex: Male

DRUGS (2)
  1. FENTANYL [Suspect]
     Active Substance: FENTANYL\FENTANYL CITRATE
     Indication: Oropharyngeal squamous cell carcinoma
     Dosage: 25 MICROGRAM, Q3D (ON EVERY 72 H)
     Route: 061
  2. FENTANYL [Suspect]
     Active Substance: FENTANYL\FENTANYL CITRATE
     Indication: Pain

REACTIONS (1)
  - Drug ineffective [Unknown]
